FAERS Safety Report 26091991 (Version 1)
Quarter: 2025Q4

REPORT INFORMATION
  Report Type: Spontaneous
  Country: GB (occurrence: GB)
  Receive Date: 20251126
  Receipt Date: 20251126
  Transmission Date: 20260117
  Serious: Yes (Life-Threatening, Other)
  Sender: REGENERON
  Company Number: GB-SA-2025SA352065

PATIENT
  Age: 69 Year
  Sex: Female

DRUGS (1)
  1. PRALUENT [Suspect]
     Active Substance: ALIROCUMAB
     Indication: Type IIa hyperlipidaemia
     Dosage: 75 MG, QOW, SOLUTION FOR INJECTION
     Route: 058

REACTIONS (3)
  - Cerebrovascular accident [Unknown]
  - Mental impairment [Unknown]
  - Back disorder [Unknown]
